FAERS Safety Report 20442480 (Version 1)
Quarter: 2022Q1

REPORT INFORMATION
  Report Type: Spontaneous
  Country: US (occurrence: US)
  Receive Date: 20220208
  Receipt Date: 20220208
  Transmission Date: 20220424
  Serious: No
  Sender: FDA-Public Use
  Company Number: US-ALLERGAN-2134470US

PATIENT
  Age: 80 Year
  Sex: Male

DRUGS (4)
  1. VIIBRYD [Suspect]
     Active Substance: VILAZODONE HYDROCHLORIDE
     Indication: Depression
     Dosage: 10 MG
  2. VIIBRYD [Suspect]
     Active Substance: VILAZODONE HYDROCHLORIDE
     Dosage: 20 MG
  3. ASPIRIN [Concomitant]
     Active Substance: ASPIRIN
     Indication: Cardiac disorder
  4. GABAPENTIN [Concomitant]
     Active Substance: GABAPENTIN
     Indication: Stenosis

REACTIONS (7)
  - Body temperature fluctuation [Not Recovered/Not Resolved]
  - Flat affect [Recovered/Resolved]
  - Mental disorder [Recovered/Resolved]
  - Drug titration error [Unknown]
  - Flushing [Not Recovered/Not Resolved]
  - Sleep disorder [Not Recovered/Not Resolved]
  - Libido decreased [Recovered/Resolved]

NARRATIVE: CASE EVENT DATE: 20210901
